FAERS Safety Report 10361240 (Version 4)
Quarter: 2015Q3

REPORT INFORMATION
  Report Type: Spontaneous
  Country: US (occurrence: US)
  Receive Date: 20140804
  Receipt Date: 20150715
  Transmission Date: 20151125
  Serious: Yes (Other)
  Sender: FDA-Public Use
  Company Number: US-PFIZER INC-2014214987

PATIENT
  Age: 53 Year
  Sex: Female
  Weight: 70 kg

DRUGS (6)
  1. SPIRONOLACTONE. [Concomitant]
     Active Substance: SPIRONOLACTONE
     Dosage: 100 MG, 1X/DAY
     Route: 048
  2. FUROSEMIDE. [Concomitant]
     Active Substance: FUROSEMIDE
     Indication: FLUID RETENTION
     Dosage: 40 MG UP TO ONE HALF PER DAY
  3. REVATIO [Suspect]
     Active Substance: SILDENAFIL CITRATE
     Indication: PULMONARY ARTERIAL HYPERTENSION
     Dosage: 20 MG, 3X/DAY
     Route: 048
     Dates: start: 2012
  4. METFORMIN [Concomitant]
     Active Substance: METFORMIN HYDROCHLORIDE
     Dosage: 500 MG, 1X/DAY
     Route: 048
  5. VITAMIN A /00056001/ [Concomitant]
     Active Substance: RETINOL
     Dosage: 1000 UNITS (2 GELCAPS 3X/WEEK)
     Route: 048
  6. LETAIRIS [Concomitant]
     Active Substance: AMBRISENTAN
     Dosage: 5 MG, 1X/DAY
     Route: 048

REACTIONS (11)
  - Merycism [Unknown]
  - Hepatic cirrhosis [Unknown]
  - Gait disturbance [Recovered/Resolved]
  - Chest discomfort [Unknown]
  - Asthenia [Recovered/Resolved]
  - Drug dose omission [Recovered/Resolved]
  - Dyspnoea [Unknown]
  - Neoplasm malignant [Unknown]
  - Flatulence [Unknown]
  - Muscular weakness [Recovered/Resolved]
  - Malaise [Recovered/Resolved]

NARRATIVE: CASE EVENT DATE: 201406
